FAERS Safety Report 16718440 (Version 1)
Quarter: 2019Q3

REPORT INFORMATION
  Report Type: Report from Study
  Country: US (occurrence: US)
  Receive Date: 20190820
  Receipt Date: 20190820
  Transmission Date: 20191005
  Serious: Yes (Hospitalization, Other)
  Sender: FDA-Public Use
  Company Number: US-ROCHE-2373291

PATIENT
  Age: 74 Year
  Sex: Female
  Weight: 64.47 kg

DRUGS (8)
  1. SYNTHROID [Concomitant]
     Active Substance: LEVOTHYROXINE SODIUM
  2. KEPPRA [Concomitant]
     Active Substance: LEVETIRACETAM
     Indication: SEIZURE
  3. OCREVUS [Suspect]
     Active Substance: OCRELIZUMAB
     Indication: PRIMARY PROGRESSIVE MULTIPLE SCLEROSIS
     Dosage: ONGOING: UNKNOWN
     Route: 065
     Dates: start: 2017
  4. BACLOFEN. [Concomitant]
     Active Substance: BACLOFEN
     Indication: MUSCLE SPASMS
     Route: 065
     Dates: start: 2005
  5. ASCORBIC ACID. [Concomitant]
     Active Substance: ASCORBIC ACID
  6. AMANTADINE. [Concomitant]
     Active Substance: AMANTADINE HYDROCHLORIDE
     Route: 065
     Dates: start: 2005
  7. LAMICTAL [Concomitant]
     Active Substance: LAMOTRIGINE
     Indication: SEIZURE
     Dosage: ONGOING:YES
     Route: 065
     Dates: start: 2018
  8. MELATONIN [Concomitant]
     Active Substance: MELATONIN
     Route: 065

REACTIONS (5)
  - Sepsis [Recovered/Resolved]
  - JC polyomavirus test positive [Unknown]
  - Decubitus ulcer [Not Recovered/Not Resolved]
  - Urinary tract infection enterococcal [Recovered/Resolved]
  - Fungaemia [Recovered/Resolved]

NARRATIVE: CASE EVENT DATE: 201902
